FAERS Safety Report 24552008 (Version 1)
Quarter: 2024Q4

REPORT INFORMATION
  Report Type: Spontaneous
  Country: US (occurrence: US)
  Receive Date: 20241026
  Receipt Date: 20241026
  Transmission Date: 20250114
  Serious: No
  Sender: ALEXION PHARMACEUTICALS
  Company Number: US-AstraZeneca-CH-00728503A

PATIENT

DRUGS (4)
  1. SAPHNELO [Suspect]
     Active Substance: ANIFROLUMAB-FNIA
     Route: 065
  2. SAPHNELO [Suspect]
     Active Substance: ANIFROLUMAB-FNIA
  3. SAPHNELO [Suspect]
     Active Substance: ANIFROLUMAB-FNIA
     Route: 065
  4. SAPHNELO [Suspect]
     Active Substance: ANIFROLUMAB-FNIA

REACTIONS (2)
  - Illness [Unknown]
  - Nasopharyngitis [Unknown]
